FAERS Safety Report 9360628 (Version 1)
Quarter: 2013Q2

REPORT INFORMATION
  Report Type: Spontaneous
  Country: US (occurrence: US)
  Receive Date: 20130621
  Receipt Date: 20130621
  Transmission Date: 20140414
  Serious: Yes (Hospitalization)
  Sender: FDA-Public Use
  Company Number: US-ROCHE-1237270

PATIENT
  Sex: Female

DRUGS (2)
  1. CELLCEPT [Suspect]
     Indication: PRODUCT USED FOR UNKNOWN INDICATION
     Route: 065
  2. RITUXAN [Suspect]
     Indication: PRODUCT USED FOR UNKNOWN INDICATION
     Route: 065

REACTIONS (13)
  - Dyspnoea [Unknown]
  - Cough [Unknown]
  - Respiratory tract congestion [Unknown]
  - Pneumonia [Unknown]
  - Obstructive airways disorder [Unknown]
  - Night sweats [Unknown]
  - Weight decreased [Unknown]
  - Decreased appetite [Unknown]
  - Rales [Unknown]
  - Platelet count decreased [Unknown]
  - Lung infiltration [Unknown]
  - Thrombocytopenia [Unknown]
  - Leukopenia [Unknown]
